FAERS Safety Report 13739108 (Version 1)
Quarter: 2017Q3

REPORT INFORMATION
  Report Type: Spontaneous
  Country: US (occurrence: US)
  Receive Date: 20170710
  Receipt Date: 20170710
  Transmission Date: 20171127
  Serious: Yes (Other)
  Sender: FDA-Public Use
  Company Number: US-SAOL THERAPEUTICS-2017SAO00925

PATIENT
  Sex: Female
  Weight: 65 kg

DRUGS (3)
  1. DILAUDID [Suspect]
     Active Substance: HYDROMORPHONE HYDROCHLORIDE
     Dosage: 2.506 MG, \DAY
     Route: 037
  2. BACLOFEN. [Suspect]
     Active Substance: BACLOFEN
     Dosage: 31.32 ?G, \DAY
     Route: 037
  3. UNIDENTIFIED ORAL PAIN MEDICATIONS [Concomitant]
     Dosage: UNK
     Route: 048

REACTIONS (3)
  - Device damage [Unknown]
  - Implant site extravasation [Unknown]
  - Therapy non-responder [Unknown]
